FAERS Safety Report 7651440-9 (Version None)
Quarter: 2011Q3

REPORT INFORMATION
  Report Type: 
  Country: None (occurrence: None)
  Receive Date: 20110802
  Receipt Date: 20110725
  Transmission Date: 20111222
  Serious: No
  Sender: FDA-Public Use
  Company Number: PHHY2011CH62023

PATIENT
  Sex: Female

DRUGS (2)
  1. NEORAL [Suspect]
     Dosage: UNK
     Dates: start: 19970909, end: 19980525
  2. METHOTREXATE [Concomitant]

REACTIONS (1)
  - HYPERTENSION [None]
